FAERS Safety Report 15861352 (Version 1)
Quarter: 2019Q1

REPORT INFORMATION
  Report Type: Spontaneous
  Country: DE (occurrence: DE)
  Receive Date: 20190124
  Receipt Date: 20190124
  Transmission Date: 20190417
  Serious: Yes (Other)
  Sender: FDA-Public Use
  Company Number: DE-009507513-1901DEU007503

PATIENT
  Age: 48 Year
  Sex: Female

DRUGS (5)
  1. TORSEMIDE. [Concomitant]
     Active Substance: TORSEMIDE
     Dosage: 1 TABLET (10 MILLIGRAM), IN THE MORNING AND IN THE EVENING
     Route: 048
  2. MARCUMAR [Concomitant]
     Active Substance: PHENPROCOUMON
     Dosage: AFTER INTERNATIONAL NORMALISED RATIO (INR)
  3. METOHEXAL SUCC [Concomitant]
     Active Substance: METOPROLOL SUCCINATE
     Dosage: 0.5 TABLET (47,5 MG), IN THE MORNING AND IN THE EVENING
     Route: 048
  4. STEGLUJAN [Suspect]
     Active Substance: ERTUGLIFLOZIN PIDOLATE\SITAGLIPTIN PHOSPHATE
     Indication: DIABETES MELLITUS
     Dosage: 1 TABLET (5/100 MG) DAILY
     Route: 048
     Dates: start: 20181218, end: 20190104
  5. SPIRONOLACTONE. [Concomitant]
     Active Substance: SPIRONOLACTONE
     Indication: CARDIAC FAILURE
     Dosage: 50 MILLIGRAM, DAILY

REACTIONS (2)
  - Pulmonary congestion [Recovered/Resolved]
  - Lung infection [Unknown]

NARRATIVE: CASE EVENT DATE: 201812
